FAERS Safety Report 18274150 (Version 1)
Quarter: 2020Q3

REPORT INFORMATION
  Report Type: Spontaneous
  Country: US (occurrence: US)
  Receive Date: 20200916
  Receipt Date: 20200916
  Transmission Date: 20201103
  Serious: Yes (Other)
  Sender: FDA-Public Use
  Company Number: US-AMERICAN REGENT INC-2020001901

PATIENT
  Sex: Male

DRUGS (8)
  1. DEXMEDETOMIDINE HYDROCHLORIDE INJECTION (0517?0995?25) [Suspect]
     Active Substance: DEXMEDETOMIDINE HYDROCHLORIDE
     Indication: CATARACT OPERATION
     Dosage: UNK
     Route: 042
  2. PHENYLEPHRINE [Concomitant]
     Active Substance: PHENYLEPHRINE HYDROCHLORIDE
     Indication: PREOPERATIVE CARE
     Dosage: UNK PERCENT
     Route: 065
  3. CYCLOPENTOLATE. [Concomitant]
     Active Substance: CYCLOPENTOLATE
     Indication: PREOPERATIVE CARE
     Dosage: UNK PERCENT
     Route: 065
  4. TROPICAMIDE. [Concomitant]
     Active Substance: TROPICAMIDE
     Indication: MYDRIASIS
  5. DEXMEDETOMIDINE HYDROCHLORIDE INJECTION (0517?0995?25) [Suspect]
     Active Substance: DEXMEDETOMIDINE HYDROCHLORIDE
     Indication: SEDATION
  6. PHENYLEPHRINE [Concomitant]
     Active Substance: PHENYLEPHRINE HYDROCHLORIDE
     Indication: MYDRIASIS
  7. TROPICAMIDE. [Concomitant]
     Active Substance: TROPICAMIDE
     Indication: PREOPERATIVE CARE
     Dosage: UNK PERCENT
     Route: 065
  8. CYCLOPENTOLATE. [Concomitant]
     Active Substance: CYCLOPENTOLATE
     Indication: MYDRIASIS

REACTIONS (1)
  - Floppy iris syndrome [Unknown]
